FAERS Safety Report 8510970-8 (Version None)
Quarter: 2012Q3

REPORT INFORMATION
  Report Type: 
  Country: None (occurrence: None)
  Receive Date: 20120716
  Receipt Date: 20120706
  Transmission Date: 20120928
  Serious: Yes (Hospitalization, Other)
  Sender: FDA-Public Use
  Company Number: US-AMGEN-USASP2012036187

PATIENT
  Age: 12 Year
  Sex: Male

DRUGS (4)
  1. METHOTREXATE [Suspect]
     Indication: JUVENILE ARTHRITIS
     Dosage: UNK
  2. NAPROXEN [Suspect]
     Indication: JUVENILE ARTHRITIS
     Dosage: UNK
     Dates: start: 20100501
  3. ENBREL [Suspect]
     Indication: JUVENILE ARTHRITIS
     Dosage: UNK
     Dates: start: 20040401, end: 20090801
  4. ENBREL [Suspect]
     Dosage: UNK
     Dates: start: 20100501

REACTIONS (9)
  - JOINT SWELLING [None]
  - RESTLESSNESS [None]
  - MOANING [None]
  - UNRESPONSIVE TO STIMULI [None]
  - JUVENILE ARTHRITIS [None]
  - CONVULSION [None]
  - OBSESSIVE-COMPULSIVE DISORDER [None]
  - INSOMNIA [None]
  - INAPPROPRIATE AFFECT [None]
